FAERS Safety Report 6856165-5 (Version None)
Quarter: 2010Q3

REPORT INFORMATION
  Report Type: 
  Country: None (occurrence: None)
  Receive Date: 20100719
  Receipt Date: 20100708
  Transmission Date: 20110219
  Serious: Yes (Hospitalization, Other)
  Sender: FDA-Public Use
  Company Number: PHHY2010BR39214

PATIENT
  Sex: Female

DRUGS (4)
  1. EXELON [Suspect]
     Indication: DEMENTIA ALZHEIMER'S TYPE
     Dosage: 1 CAPSULE TWICE DAILY
     Route: 048
  2. DIAMICRON [Concomitant]
     Dosage: 30 MG, 2 TABLETS/DAY
     Route: 048
  3. LIPITOR [Concomitant]
     Dosage: 10MG, 1 TABLET/ DAY
     Route: 048
  4. OMEPRAZOLE [Concomitant]
     Dosage: 20MG, 1 TABLET/ DAY
     Route: 048

REACTIONS (5)
  - DRUG ADMINISTRATION ERROR [None]
  - DYSPHAGIA [None]
  - HYPOPHAGIA [None]
  - PNEUMONIA [None]
  - WEIGHT DECREASED [None]
